FAERS Safety Report 6239360-8 (Version None)
Quarter: 2009Q2

REPORT INFORMATION
  Report Type: 
  Country: None (occurrence: None)
  Receive Date: 20090618
  Receipt Date: 20090618
  Transmission Date: 20091009
  Serious: Yes (Other)
  Sender: FDA-Public Use
  Company Number: None

PATIENT
  Age: 60 Year
  Sex: Female
  Weight: 58.9676 kg

DRUGS (1)
  1. ZICAM NASAL SWABS [Suspect]
     Indication: NASAL CONGESTION
     Dates: start: 20040110, end: 20040111

REACTIONS (1)
  - PAROSMIA [None]
